FAERS Safety Report 5084805-2 (Version None)
Quarter: 2006Q3

REPORT INFORMATION
  Report Type: 
  Country: None (occurrence: None)
  Receive Date: 20060821
  Receipt Date: 20060711
  Transmission Date: 20061208
  Serious: Yes (Death)
  Sender: FDA-Public Use
  Company Number: DE-BRISTOL-MYERS SQUIBB COMPANY-13443312

PATIENT
  Age: 42 Year
  Sex: Female

DRUGS (8)
  1. ABILIFY [Suspect]
     Indication: SCHIZOAFFECTIVE DISORDER
     Dosage: DOSE INCREASED TO 10 MG DAILY ON 29-JUN-2006.
     Route: 048
     Dates: start: 20060626, end: 20060701
  2. ABILIFY [Suspect]
     Indication: DEPRESSION
     Dosage: DOSE INCREASED TO 10 MG DAILY ON 29-JUN-2006.
     Route: 048
     Dates: start: 20060626, end: 20060701
  3. ABILIFY [Suspect]
     Indication: IMPULSE-CONTROL DISORDER
     Dosage: DOSE INCREASED TO 10 MG DAILY ON 29-JUN-2006.
     Route: 048
     Dates: start: 20060626, end: 20060701
  4. GLIANIMON [Suspect]
     Indication: SCHIZOAFFECTIVE DISORDER
     Route: 048
     Dates: start: 20060623, end: 20060627
  5. GLIANIMON [Suspect]
     Indication: DEPRESSION
     Route: 048
     Dates: start: 20060623, end: 20060627
  6. GLIANIMON [Suspect]
     Indication: DELUSION
     Route: 048
     Dates: start: 20060623, end: 20060627
  7. LAMICTAL [Concomitant]
     Dates: start: 20060623
  8. APONAL [Concomitant]
     Indication: DEPRESSION
     Route: 042
     Dates: start: 20060627, end: 20060701

REACTIONS (1)
  - NEUROLEPTIC MALIGNANT SYNDROME [None]
